FAERS Safety Report 14098649 (Version 10)
Quarter: 2020Q1

REPORT INFORMATION
  Report Type: Report from Study
  Country: CA (occurrence: CA)
  Receive Date: 20171017
  Receipt Date: 20200304
  Transmission Date: 20200409
  Serious: Yes (Hospitalization, Other)
  Sender: FDA-Public Use
  Company Number: CA-ROCHE-2005602

PATIENT
  Age: 64 Year
  Sex: Male
  Weight: 133.6 kg

DRUGS (16)
  1. ESBRIET [Suspect]
     Active Substance: PIRFENIDONE
     Dosage: (ON AVERAGE 1869 MG DAILY)
     Route: 048
  2. ALTACE [Concomitant]
     Active Substance: RAMIPRIL
  3. DILTIAZEM. [Concomitant]
     Active Substance: DILTIAZEM
  4. ROSUVASTATIN. [Concomitant]
     Active Substance: ROSUVASTATIN
  5. FLOMAX [Concomitant]
     Active Substance: TAMSULOSIN HYDROCHLORIDE
  6. PULMICORT TURBUHALER [Concomitant]
     Active Substance: BUDESONIDE
  7. ESBRIET [Suspect]
     Active Substance: PIRFENIDONE
     Indication: IDIOPATHIC PULMONARY FIBROSIS
     Route: 048
     Dates: start: 20170905
  8. ESBRIET [Suspect]
     Active Substance: PIRFENIDONE
     Route: 048
     Dates: start: 2017
  9. LANTUS [Concomitant]
     Active Substance: INSULIN GLARGINE
  10. ALLOPURINOL. [Concomitant]
     Active Substance: ALLOPURINOL
  11. ACETYLSALICYLIC ACID [Concomitant]
     Active Substance: ASPIRIN
  12. ESBRIET [Suspect]
     Active Substance: PIRFENIDONE
     Dosage: DRUG DOSE FIRST ADMINISTERED IS 801 MG MILLIGRAM(S)
     Route: 048
     Dates: start: 201903
  13. ESBRIET [Suspect]
     Active Substance: PIRFENIDONE
     Route: 048
     Dates: start: 201709
  14. NOVORAPID [Concomitant]
     Active Substance: INSULIN ASPART
  15. ROSUVASTATIN. [Concomitant]
     Active Substance: ROSUVASTATIN
  16. PROPRANOLOL [Concomitant]
     Active Substance: PROPRANOLOL HYDROCHLORIDE

REACTIONS (23)
  - Dyspnoea [Unknown]
  - Myalgia [Not Recovered/Not Resolved]
  - Cough [Not Recovered/Not Resolved]
  - Gout [Not Recovered/Not Resolved]
  - Pruritus [Not Recovered/Not Resolved]
  - Flatulence [Not Recovered/Not Resolved]
  - Throat irritation [Unknown]
  - Epistaxis [Unknown]
  - Drug ineffective [Unknown]
  - Product dose omission [Unknown]
  - Sensitive skin [Recovering/Resolving]
  - Sinusitis [Not Recovered/Not Resolved]
  - Heart rate irregular [Not Recovered/Not Resolved]
  - Oxygen saturation decreased [Unknown]
  - Headache [Recovering/Resolving]
  - Weight increased [Unknown]
  - Nasal congestion [Unknown]
  - Atrial fibrillation [Unknown]
  - Dyspepsia [Not Recovered/Not Resolved]
  - Dry skin [Not Recovered/Not Resolved]
  - Pulmonary fibrosis [Not Recovered/Not Resolved]
  - Fatigue [Not Recovered/Not Resolved]
  - Asthenia [Unknown]

NARRATIVE: CASE EVENT DATE: 20170915
